FAERS Safety Report 17245093 (Version 1)
Quarter: 2020Q1

REPORT INFORMATION
  Report Type: Report from Study
  Country: US (occurrence: US)
  Receive Date: 20200108
  Receipt Date: 20200108
  Transmission Date: 20200409
  Serious: Yes (Hospitalization)
  Sender: FDA-Public Use
  Company Number: US-BIOGEN-2019BI00822747

PATIENT
  Age: 76 Year
  Sex: Female

DRUGS (3)
  1. PLEGRIDY [Suspect]
     Active Substance: PEGINTERFERON BETA-1A
     Route: 058
     Dates: start: 20191220
  2. PLEGRIDY [Suspect]
     Active Substance: PEGINTERFERON BETA-1A
     Route: 058
     Dates: start: 20191220
  3. PLEGRIDY [Suspect]
     Active Substance: PEGINTERFERON BETA-1A
     Indication: MULTIPLE SCLEROSIS
     Route: 058
     Dates: start: 20191219

REACTIONS (20)
  - Confusional state [Unknown]
  - Arthralgia [Unknown]
  - Chills [Recovered/Resolved]
  - Blood potassium decreased [Not Recovered/Not Resolved]
  - Myalgia [Recovered/Resolved]
  - Impaired self-care [Not Recovered/Not Resolved]
  - Blood magnesium decreased [Not Recovered/Not Resolved]
  - Mental impairment [Not Recovered/Not Resolved]
  - Swelling of eyelid [Unknown]
  - Gait inability [Not Recovered/Not Resolved]
  - Muscular weakness [Unknown]
  - Thirst [Unknown]
  - Rhinorrhoea [Unknown]
  - Asthenia [Not Recovered/Not Resolved]
  - Fatigue [Unknown]
  - Discomfort [Recovered/Resolved]
  - General physical health deterioration [Not Recovered/Not Resolved]
  - Fall [Recovered/Resolved]
  - Pain [Unknown]
  - Dysphonia [Unknown]

NARRATIVE: CASE EVENT DATE: 201912
